FAERS Safety Report 4657090-0 (Version None)
Quarter: 2005Q2

REPORT INFORMATION
  Report Type: 
  Country: None (occurrence: None)
  Receive Date: 20050506
  Receipt Date: 20050427
  Transmission Date: 20051028
  Serious: Yes (Other)
  Sender: FDA-Public Use
  Company Number: 2005051599

PATIENT
  Age: 64 Year
  Sex: Female

DRUGS (17)
  1. CELEBREX [Suspect]
     Indication: ARTHRITIS
     Dosage: 400 MG, ORAL
     Route: 048
  2. TRAZODONE HCL [Concomitant]
  3. HYDROMORPHONE HCL [Concomitant]
  4. ALPRAZOLAM [Concomitant]
  5. VICODIN [Concomitant]
  6. METFORMIN HCL [Concomitant]
  7. OXYCODONE HCL [Concomitant]
  8. LORAZEPAM [Concomitant]
  9. PREDNISONE [Concomitant]
  10. CYCLOBENZAPRINE HCL [Concomitant]
  11. METHOCARBAMOL [Concomitant]
  12. METOCLOPRAMIDE [Concomitant]
  13. CARISOPRODOL [Concomitant]
  14. DEXTROPROPOXYYPHENE (DEXTROPROPOXYPHENE) [Concomitant]
  15. PROMETHAZINE [Concomitant]
  16. HYDROXYZINE EMBONATE (HYDROXYZINE EMBONATE) [Concomitant]
  17. ALL OTHER THERAPEUTIC PRODUCTS (ALL OTHER THERAPEUTIC PRODUCTS) [Concomitant]

REACTIONS (2)
  - ECONOMIC PROBLEM [None]
  - TREATMENT NONCOMPLIANCE [None]
